FAERS Safety Report 13639827 (Version 1)
Quarter: 2017Q2

REPORT INFORMATION
  Report Type: Spontaneous
  Country: US (occurrence: US)
  Receive Date: 20170609
  Receipt Date: 20170609
  Transmission Date: 20170830
  Serious: No
  Sender: FDA-Public Use
  Company Number: US-ROCHE-549795

PATIENT
  Sex: Female
  Weight: 73.09 kg

DRUGS (8)
  1. KLONOPIN [Suspect]
     Active Substance: CLONAZEPAM
     Indication: HYPOSOMNIA
     Dosage: OTHER INDICATION: SLEEP DISORDER.
     Route: 065
  2. KLONOPIN [Suspect]
     Active Substance: CLONAZEPAM
     Route: 065
  3. CLONAZEPAM. [Suspect]
     Active Substance: CLONAZEPAM
     Indication: SOMNOLENCE
     Route: 065
  4. LYRICA [Suspect]
     Active Substance: PREGABALIN
     Indication: SCIATICA
     Route: 048
     Dates: start: 2007
  5. ALBUTEROL/ALBUTEROL SULFATE [Concomitant]
  6. KLONOPIN [Suspect]
     Active Substance: CLONAZEPAM
     Route: 065
  7. KLONOPIN [Suspect]
     Active Substance: CLONAZEPAM
     Route: 065
  8. DIAZEPAM. [Concomitant]
     Active Substance: DIAZEPAM
     Route: 065

REACTIONS (10)
  - Fatigue [Not Recovered/Not Resolved]
  - Anger [Unknown]
  - Feeling drunk [Unknown]
  - Drug ineffective [Unknown]
  - Nightmare [Not Recovered/Not Resolved]
  - Insomnia [Not Recovered/Not Resolved]
  - Loss of dreaming [Unknown]
  - Fall [Unknown]
  - Stress [Unknown]
  - Fatigue [Unknown]
